FAERS Safety Report 24594449 (Version 1)
Quarter: 2024Q4

REPORT INFORMATION
  Report Type: Spontaneous
  Country: US (occurrence: US)
  Receive Date: 20241108
  Receipt Date: 20241108
  Transmission Date: 20250115
  Serious: Yes (Hospitalization, Other)
  Sender: AMGEN
  Company Number: US-AMGEN-USASP2024219280

PATIENT
  Age: 22 Year
  Sex: Male

DRUGS (2)
  1. INFLIXIMAB [Suspect]
     Active Substance: INFLIXIMAB
     Indication: Sarcoidosis
     Dosage: UNK
     Route: 065
  2. PREDNISOLONE [Concomitant]
     Active Substance: PREDNISOLONE
     Indication: Sarcoidosis
     Dosage: UNK
     Route: 065

REACTIONS (10)
  - Aplastic anaemia [Unknown]
  - Mycobacterium abscessus infection [Unknown]
  - Mycobacterial infection [Unknown]
  - Sepsis [Unknown]
  - Arthralgia [Unknown]
  - Weight decreased [Unknown]
  - Lymph node calcification [Unknown]
  - Monocytopenia [Unknown]
  - GATA2 deficiency [Unknown]
  - Off label use [Unknown]
